FAERS Safety Report 23789445 (Version 4)
Quarter: 2025Q2

REPORT INFORMATION
  Report Type: Spontaneous
  Country: US (occurrence: US)
  Receive Date: 20240426
  Receipt Date: 20250616
  Transmission Date: 20250716
  Serious: No
  Sender: PFIZER
  Company Number: US-PFIZER INC-202400093100

PATIENT
  Age: 77 Year
  Sex: Female
  Weight: 107.5 kg

DRUGS (2)
  1. TIKOSYN [Suspect]
     Active Substance: DOFETILIDE
     Indication: Atrial fibrillation
     Dosage: 250 MG, 2X/DAY (ONE CAPSULE TWICE A DAY)
     Dates: start: 20240415
  2. METOPROLOL SUCCINATE [Concomitant]
     Active Substance: METOPROLOL SUCCINATE
     Indication: Atrial fibrillation
     Dosage: 50MG TWICE A DAY

REACTIONS (1)
  - Drug ineffective [Unknown]
